FAERS Safety Report 6501799-0 (Version None)
Quarter: 2009Q4

REPORT INFORMATION
  Report Type: 
  Country: None (occurrence: None)
  Receive Date: 20091216
  Receipt Date: 20090827
  Transmission Date: 20100525
  Serious: No
  Sender: FDA-Public Use
  Company Number: US-AMGEN-KDL361995

PATIENT
  Sex: Female

DRUGS (5)
  1. ARANESP [Suspect]
     Indication: RENAL FAILURE CHRONIC
     Dates: start: 20090601
  2. SINTROM [Concomitant]
  3. DIGOXIN [Concomitant]
  4. IRON [Concomitant]
  5. FOLIC ACID [Concomitant]

REACTIONS (5)
  - ASTHENIA [None]
  - BLOOD PRESSURE INCREASED [None]
  - FATIGUE [None]
  - HEART RATE IRREGULAR [None]
  - WHITE BLOOD CELL COUNT DECREASED [None]
